FAERS Safety Report 23947392 (Version 2)
Quarter: 2024Q2

REPORT INFORMATION
  Report Type: Spontaneous
  Country: US (occurrence: US)
  Receive Date: 20240606
  Receipt Date: 20240624
  Transmission Date: 20240716
  Serious: Yes (Other)
  Sender: FDA-Public Use
  Company Number: US-BIOVITRUM-2024-US-008096

PATIENT
  Age: 74 Year
  Sex: Male

DRUGS (1)
  1. VONJO [Suspect]
     Active Substance: PACRITINIB
     Indication: Chronic myelomonocytic leukaemia
     Dosage: TWICE DAILY (BID)
     Route: 048
     Dates: start: 20240313

REACTIONS (4)
  - Cataract [Unknown]
  - Off label use [Not Recovered/Not Resolved]
  - Product dose omission issue [Unknown]
  - Platelet count abnormal [Unknown]

NARRATIVE: CASE EVENT DATE: 20240313
